FAERS Safety Report 5829568-5 (Version None)
Quarter: 2008Q3

REPORT INFORMATION
  Report Type: 
  Country: None (occurrence: None)
  Receive Date: 20080731
  Receipt Date: 20080721
  Transmission Date: 20090109
  Serious: Yes (Other)
  Sender: FDA-Public Use
  Company Number: US-PFIZER INC-2008049178

PATIENT
  Sex: Female
  Weight: 52.272 kg

DRUGS (10)
  1. RELPAX [Suspect]
     Indication: MIGRAINE
  2. CELEBREX [Concomitant]
  3. DETROL LA [Concomitant]
  4. ZYRTEC [Concomitant]
  5. LIPITOR [Concomitant]
  6. ULTRACET [Concomitant]
  7. FLEXERIL [Concomitant]
  8. BACLOFEN [Concomitant]
  9. IMITREX [Concomitant]
     Route: 045
  10. COREG [Concomitant]

REACTIONS (2)
  - HYPOAESTHESIA [None]
  - MULTIPLE SCLEROSIS [None]
